FAERS Safety Report 7955736 (Version 4)
Quarter: 2016Q3

REPORT INFORMATION
  Report Type: Spontaneous
  Country: AU (occurrence: AU)
  Receive Date: 20110523
  Receipt Date: 20160915
  Transmission Date: 20161109
  Serious: Yes (Hospitalization, Other)
  Sender: FDA-Public Use
  Company Number: AU-009507513-1105USA02355

PATIENT
  Age: 10 Year
  Sex: Male
  Weight: 35 kg

DRUGS (2)
  1. SINGULAIR [Suspect]
     Active Substance: MONTELUKAST SODIUM
     Indication: ASTHMA
     Dosage: 5 MG, QD
     Route: 048
     Dates: start: 20100517, end: 20110325
  2. VENTOLIN [Concomitant]
     Active Substance: ALBUTEROL SULFATE
     Indication: ASTHMA
     Dosage: 100 MICROGRAM, PRN
     Route: 055
     Dates: start: 20050501

REACTIONS (9)
  - Loss of consciousness [Recovered/Resolved]
  - Decreased interest [Recovered/Resolved]
  - Disturbance in attention [Recovered/Resolved]
  - Mood swings [Recovered/Resolved]
  - Crying [Recovered/Resolved]
  - Feeling of despair [Recovered/Resolved]
  - Apathy [Recovered/Resolved]
  - Irritability [Recovered/Resolved]
  - Aggression [Recovered/Resolved]

NARRATIVE: CASE EVENT DATE: 20100701
